FAERS Safety Report 4914568-X (Version None)
Quarter: 2006Q1

REPORT INFORMATION
  Report Type: 
  Country: None (occurrence: None)
  Receive Date: 20060216
  Receipt Date: 20060109
  Transmission Date: 20060701
  Serious: Yes (Hospitalization)
  Sender: FDA-Public Use
  Company Number: US-MERCK-0601USA01025

PATIENT
  Age: 65 Year
  Sex: Male
  Weight: 86 kg

DRUGS (13)
  1. LOPRESSOR [Concomitant]
     Route: 065
  2. ALTACE [Concomitant]
     Route: 065
  3. CORDARONE [Concomitant]
     Route: 065
  4. PLAVIX [Concomitant]
     Route: 065
  5. ZOCOR [Concomitant]
     Route: 065
  6. VIOXX [Suspect]
     Indication: RHEUMATOID ARTHRITIS
     Route: 048
     Dates: start: 20011217, end: 20040930
  7. VIOXX [Suspect]
     Indication: COMPLEX REGIONAL PAIN SYNDROME
     Route: 048
     Dates: start: 20011217, end: 20040930
  8. PREDNISONE [Concomitant]
     Route: 065
  9. NORVASC [Concomitant]
     Route: 065
  10. ARAVA [Concomitant]
     Route: 065
  11. VICODIN [Concomitant]
     Route: 065
  12. FOSAMAX [Concomitant]
     Route: 065
  13. COUMADIN [Concomitant]
     Route: 065

REACTIONS (10)
  - ACUTE MYOCARDIAL INFARCTION [None]
  - ARTERIOSCLEROSIS CORONARY ARTERY [None]
  - LUMBAR SPINAL STENOSIS [None]
  - OSTEOARTHRITIS [None]
  - POSTOPERATIVE ILEUS [None]
  - PROCEDURAL HYPOTENSION [None]
  - SINUS BRADYCARDIA [None]
  - VENTRICULAR ARRHYTHMIA [None]
  - VENTRICULAR EXTRASYSTOLES [None]
  - VENTRICULAR TACHYCARDIA [None]
